FAERS Safety Report 7036114-X (Version None)
Quarter: 2010Q4

REPORT INFORMATION
  Report Type: 
  Country: None (occurrence: None)
  Receive Date: 20101008
  Receipt Date: 20091118
  Transmission Date: 20110411
  Serious: No
  Sender: FDA-Public Use
  Company Number: US-BRISTOL-MYERS SQUIBB COMPANY-14871446

PATIENT
  Sex: Male

DRUGS (1)
  1. APROVEL TABS 150 MG [Suspect]
     Indication: HYPERTENSION
     Route: 048
     Dates: start: 20090501

REACTIONS (3)
  - DRUG INEFFECTIVE [None]
  - PRODUCT COUNTERFEIT [None]
  - SLEEP DISORDER [None]
